FAERS Safety Report 5620039-8 (Version None)
Quarter: 2008Q1

REPORT INFORMATION
  Report Type: 
  Country: None (occurrence: None)
  Receive Date: 20080208
  Receipt Date: 20080129
  Transmission Date: 20080703
  Serious: Yes (Hospitalization)
  Sender: FDA-Public Use
  Company Number: US-JNJFOC-20080200046

PATIENT
  Age: 47 Year
  Sex: Female
  Weight: 46.27 kg

DRUGS (4)
  1. TYLENOL (CAPLET) [Suspect]
     Indication: HEADACHE
     Route: 048
  2. TYLENOL (CAPLET) [Suspect]
     Indication: BACK PAIN
     Route: 048
  3. TYLENOL (CAPLET) [Suspect]
     Indication: PYREXIA
     Dosage: 650-1300 MG A DAY
     Route: 048
  4. OXYCODONE HCL [Concomitant]

REACTIONS (1)
  - BACK PAIN [None]
